FAERS Safety Report 7724167-2 (Version None)
Quarter: 2011Q3

REPORT INFORMATION
  Report Type: 
  Country: None (occurrence: None)
  Receive Date: 20110901
  Receipt Date: 20110823
  Transmission Date: 20111222
  Serious: Yes (Hospitalization)
  Sender: FDA-Public Use
  Company Number: US-ASTRAZENECA-2011SE51140

PATIENT
  Age: 56 Year
  Sex: Female

DRUGS (4)
  1. CELEBREX [Concomitant]
  2. CALCIUM CARBONATE [Concomitant]
  3. VITAMIN D [Concomitant]
  4. NEXIUM [Suspect]
     Route: 048

REACTIONS (1)
  - CHOKING [None]
